FAERS Safety Report 9270109 (Version 1)
Quarter: 2013Q2

REPORT INFORMATION
  Report Type: Spontaneous
  Country: JP (occurrence: JP)
  Receive Date: 20130503
  Receipt Date: 20130503
  Transmission Date: 20140414
  Serious: Yes (Death, Other)
  Sender: FDA-Public Use
  Company Number: JP-JNJFOC-20130412390

PATIENT
  Age: 44 Year
  Sex: Male

DRUGS (1)
  1. RISPERDAL [Suspect]
     Indication: PRODUCT USED FOR UNKNOWN INDICATION
     Route: 048

REACTIONS (11)
  - Malnutrition [Unknown]
  - Cachexia [Unknown]
  - Weight decreased [Unknown]
  - Urine output decreased [Unknown]
  - Asthenia [Not Recovered/Not Resolved]
  - Muscular weakness [Unknown]
  - Chills [Unknown]
  - Diarrhoea [Unknown]
  - Wrong technique in drug usage process [Unknown]
  - Death [Fatal]
  - Contraindication to medical treatment [Unknown]
